FAERS Safety Report 17432086 (Version 2)
Quarter: 2020Q1

REPORT INFORMATION
  Report Type: Spontaneous
  Country: GB (occurrence: TH)
  Receive Date: 20200218
  Receipt Date: 20200316
  Transmission Date: 20200409
  Serious: Yes (Other)
  Sender: FDA-Public Use
  Company Number: GB-JNJFOC-20200210400

PATIENT
  Age: 50 Year
  Sex: Male

DRUGS (10)
  1. EMTRICITABINE [Suspect]
     Active Substance: EMTRICITABINE
     Indication: HIV INFECTION
     Dosage: UNK
     Route: 065
  2. TENOFOVIR DISOPROXIL [Suspect]
     Active Substance: TENOFOVIR DISOPROXIL
     Indication: HIV INFECTION
     Dosage: UNK
     Route: 065
  3. RALTEGRAVIR. [Concomitant]
     Active Substance: RALTEGRAVIR
  4. AMBISOME [Suspect]
     Active Substance: AMPHOTERICIN B
     Indication: HISTOPLASMOSIS
     Dosage: 3 MG/KG, QD
     Route: 065
  5. FLUCONAZOLE. [Concomitant]
     Active Substance: FLUCONAZOLE
  6. DARUNAVIR [Suspect]
     Active Substance: DARUNAVIR
     Indication: HIV INFECTION
     Dosage: BOOSTED
     Route: 048
  7. AMBISOME [Suspect]
     Active Substance: AMPHOTERICIN B
     Dosage: 5 MG/KG, QD
     Route: 065
  8. ITRACONAZOLE. [Concomitant]
     Active Substance: ITRACONAZOLE
     Indication: HIV INFECTION
     Route: 065
  9. FLUCONAZOLE. [Concomitant]
     Active Substance: FLUCONAZOLE
  10. ABACAVIR. [Concomitant]
     Active Substance: ABACAVIR
     Indication: HIV INFECTION

REACTIONS (2)
  - Immune reconstitution inflammatory syndrome [Recovering/Resolving]
  - Renal impairment [Unknown]
